FAERS Safety Report 21555916 (Version 1)
Quarter: 2022Q4

REPORT INFORMATION
  Report Type: Other
  Country: US (occurrence: None)
  Receive Date: 20221104
  Receipt Date: 20221104
  Transmission Date: 20230113
  Serious: Yes (Other)
  Sender: FDA-Public Use
  Company Number: US-ROCHE-3210831

PATIENT
  Age: 55 Year
  Sex: Female

DRUGS (3)
  1. OCREVUS [Suspect]
     Active Substance: OCRELIZUMAB
     Indication: Multiple sclerosis
     Dosage: 300 MG IV X1, THEN 300 MG IV X1 AFTER
     Route: 042
     Dates: start: 20220404, end: 20220419
  2. RITUXAN [Suspect]
     Active Substance: RITUXIMAB
     Indication: Relapsing multiple sclerosis
     Dosage: EVERY 6 MONTHS 100MG/10ML
     Route: 042
  3. DULOXETINE HYDROCHLORIDE [Concomitant]
     Active Substance: DULOXETINE HYDROCHLORIDE
     Route: 048

REACTIONS (5)
  - Oesophageal infection [Recovered/Resolved]
  - Off label use [Unknown]
  - Blood glucose increased [Unknown]
  - Globulins decreased [Unknown]
  - Albumin globulin ratio increased [Unknown]
